FAERS Safety Report 7424647-3 (Version None)
Quarter: 2011Q2

REPORT INFORMATION
  Report Type: 
  Country: None (occurrence: None)
  Receive Date: 20110419
  Receipt Date: 20110414
  Transmission Date: 20111010
  Serious: Yes (Life-Threatening, Hospitalization)
  Sender: FDA-Public Use
  Company Number: GB-PFIZER INC-2011082914

PATIENT
  Age: 57 Year
  Sex: Female

DRUGS (13)
  1. DAUNORUBICIN HCL [Suspect]
     Indication: ACUTE MYELOID LEUKAEMIA
     Dosage: UNK
     Dates: start: 20110311, end: 20110320
  2. ETOPOSIDE [Suspect]
     Indication: ACUTE MYELOID LEUKAEMIA
     Dosage: UNK
     Dates: start: 20110311, end: 20110320
  3. ETOPOSIDE [Suspect]
     Indication: MYELODYSPLASTIC SYNDROME
  4. GENTAMICIN [Concomitant]
     Dosage: 250 MG, UNK
  5. CYTARABINE [Suspect]
     Indication: ACUTE MYELOID LEUKAEMIA
     Dosage: UNK
     Dates: start: 20110311, end: 20110320
  6. CIPROFLOXACIN HYDROCHLORIDE [Concomitant]
     Dosage: 400 MG, UNK
     Dates: start: 20110410
  7. LORAZEPAM [Concomitant]
     Dosage: 1-2 MG
     Dates: start: 20110410
  8. GEMTUZUMAB OZOGAMICIN [Suspect]
     Indication: ACUTE MYELOID LEUKAEMIA
     Dosage: UNK
     Dates: start: 20110311, end: 20110320
  9. CYTARABINE [Suspect]
     Indication: MYELODYSPLASTIC SYNDROME
  10. DAUNORUBICIN HCL [Suspect]
     Indication: MYELODYSPLASTIC SYNDROME
  11. GEMTUZUMAB OZOGAMICIN [Suspect]
     Indication: MYELODYSPLASTIC SYNDROME
  12. TEICOPLANIN [Concomitant]
     Dosage: 400 MG, UNK
     Dates: start: 20110401
  13. AMBISOME [Concomitant]
     Dosage: UNK
     Dates: start: 20110411

REACTIONS (2)
  - PNEUMONITIS [None]
  - LUNG INFILTRATION [None]
